FAERS Safety Report 26175530 (Version 2)
Quarter: 2025Q4

REPORT INFORMATION
  Report Type: Report from Study
  Country: KR (occurrence: KR)
  Receive Date: 20251218
  Receipt Date: 20251229
  Transmission Date: 20260117
  Serious: Yes (Hospitalization)
  Sender: ABBVIE
  Company Number: KR-ABBVIE-6592920

PATIENT
  Age: 54 Year
  Sex: Female

DRUGS (15)
  1. RINVOQ [Suspect]
     Active Substance: UPADACITINIB
     Indication: Dermatitis atopic
     Dosage: DOSE FORM: MODIFIED-RELEASE FILM-COATED TABLET
     Route: 048
     Dates: start: 20250226, end: 20250409
  2. RINVOQ [Suspect]
     Active Substance: UPADACITINIB
     Indication: Dermatitis atopic
     Dosage: DOSE FORM: MODIFIED-RELEASE FILM-COATED TABLET
     Route: 048
     Dates: start: 20250410, end: 20250521
  3. RINVOQ [Suspect]
     Active Substance: UPADACITINIB
     Indication: Dermatitis atopic
     Dosage: DOSE FORM: MODIFIED-RELEASE FILM-COATED TABLET
     Route: 048
     Dates: start: 20250522, end: 20250917
  4. Myonal [Concomitant]
     Indication: Contusion
     Dosage: TIME INTERVAL: 0.33333333 DAYS: TAB
     Route: 048
     Dates: start: 20250316, end: 20250318
  5. LIPITOR [Concomitant]
     Active Substance: ATORVASTATIN CALCIUM
     Indication: Cerebrovascular accident
     Dosage: TAB 20MG
     Route: 048
     Dates: start: 20250107
  6. PLAVIX [Concomitant]
     Active Substance: CLOPIDOGREL BISULFATE
     Indication: Cerebrovascular accident
     Dosage: TAB 75MG
     Route: 048
     Dates: start: 20250107
  7. JUBLIA [Concomitant]
     Active Substance: EFINACONAZOLE
     Indication: Body tinea
     Dosage: TIME INTERVAL: AS NECESSARY: UNIT DOSE : UKFTU,  TOPICAL SOLN 4ML, ROUTE OF ADMINISTRATION: TOPICAL
     Dates: start: 20250626
  8. ASPIRIN [Concomitant]
     Active Substance: ASPIRIN
     Indication: Cerebrovascular accident
     Dosage: TAB 100MG
     Route: 048
     Dates: start: 20250107
  9. DORZOLAMIDE HYDROCHLORIDE\TIMOLOL MALEATE [Concomitant]
     Active Substance: DORZOLAMIDE HYDROCHLORIDE\TIMOLOL MALEATE
     Indication: Glaucoma
     Dosage: UNIT DOSE : UK DROP, OPHTHALMIC SOLUTION
     Dates: start: 20250204
  10. TEGOPRAZAN [Concomitant]
     Active Substance: TEGOPRAZAN
     Indication: Gastrooesophageal reflux prophylaxis
     Dosage: TAB 25MG
     Route: 048
     Dates: start: 20250127
  11. PROTOPIC [Concomitant]
     Active Substance: TACROLIMUS
     Indication: Dermatitis atopic
     Dosage: TIME INTERVAL: AS NECESSARY: UNIT DOSE : UK FTU,OINTMENT 0.1% 30G, ROUTE OF ADMINISTRATION: TOPICAL
     Dates: start: 20250305
  12. AMOROLFINE HYDROCHLORIDE [Concomitant]
     Active Substance: AMOROLFINE HYDROCHLORIDE
     Indication: Body tinea
     Dosage: TIME INTERVAL: AS NECESSARY: UNIT DOSE : UKFTU, CREAM, ROUTE OF ADMINISTRATION: TOPICAL
     Dates: start: 20250626
  13. VALENTAC [Concomitant]
     Indication: Contusion
     Dosage: TIME INTERVAL: AS NECESSARY: INJ
     Route: 030
     Dates: start: 20250316, end: 20250316
  14. RABONED [Concomitant]
     Indication: Vitamin supplementation
     Dosage: CAP
     Route: 048
     Dates: start: 20250316, end: 20250318
  15. LIVALO [Concomitant]
     Active Substance: PITAVASTATIN CALCIUM
     Indication: Hyperlipidaemia
     Dosage: TAB 4MG
     Route: 048
     Dates: start: 20250127, end: 20250701

REACTIONS (1)
  - Transient ischaemic attack [Recovered/Resolved]

NARRATIVE: CASE EVENT DATE: 20250406
